FAERS Safety Report 6927680-0 (Version None)
Quarter: 2010Q3

REPORT INFORMATION
  Report Type: 
  Country: None (occurrence: None)
  Receive Date: 20100817
  Receipt Date: 20100701
  Transmission Date: 20110219
  Serious: No
  Sender: FDA-Public Use
  Company Number: A0869598A

PATIENT
  Age: 50 Year
  Sex: Female

DRUGS (1)
  1. VOTRIENT [Suspect]
     Indication: NEOPLASM
     Dosage: 400MG PER DAY
     Route: 048
     Dates: start: 20100101

REACTIONS (2)
  - JOINT SWELLING [None]
  - RASH [None]
